FAERS Safety Report 23176228 (Version 2)
Quarter: 2025Q1

REPORT INFORMATION
  Report Type: Spontaneous
  Country: GB (occurrence: GB)
  Receive Date: 20231113
  Receipt Date: 20250124
  Transmission Date: 20250408
  Serious: Yes (Other)
  Sender: CELLTRION
  Company Number: GB-CELLTRION INC.-2023GB021359

PATIENT

DRUGS (2)
  1. INFLIXIMAB [Suspect]
     Active Substance: INFLIXIMAB
     Indication: Colitis ulcerative
     Dosage: EVERY OTHER WEEK
     Route: 058
     Dates: start: 20230810
  2. INFLIXIMAB [Suspect]
     Active Substance: INFLIXIMAB
     Route: 058

REACTIONS (3)
  - Haematochezia [Unknown]
  - Defaecation urgency [Unknown]
  - Product dose omission issue [Unknown]

NARRATIVE: CASE EVENT DATE: 20250115
